FAERS Safety Report 4478255-7 (Version None)
Quarter: 2004Q4

REPORT INFORMATION
  Report Type: 
  Country: None (occurrence: None)
  Receive Date: 20041014
  Receipt Date: 20040930
  Transmission Date: 20050328
  Serious: Yes (Other)
  Sender: FDA-Public Use
  Company Number: S04-UKI-06615-01

PATIENT
  Sex: Female

DRUGS (2)
  1. CIPRAMIL (CITALOPRAM HYDROBROMIDE) [Suspect]
  2. DICLOFENAC [Concomitant]

REACTIONS (1)
  - POST PROCEDURAL HAEMORRHAGE [None]
